FAERS Safety Report 5051335-3 (Version None)
Quarter: 2006Q3

REPORT INFORMATION
  Report Type: 
  Country: None (occurrence: None)
  Receive Date: 20060714
  Receipt Date: 20060705
  Transmission Date: 20061208
  Serious: Yes (Other)
  Sender: FDA-Public Use
  Company Number: US-JNJFOC-20060503909

PATIENT
  Sex: Male
  Weight: 133.81 kg

DRUGS (2)
  1. REMICADE [Suspect]
     Indication: RHEUMATOID ARTHRITIS
     Dosage: TOTAL OF 17 INFUSIONS
     Route: 042
  2. METHOTREXATE [Concomitant]

REACTIONS (4)
  - ABDOMINAL MASS [None]
  - ABDOMINAL PAIN [None]
  - LYMPHOMA [None]
  - NON-HODGKIN'S LYMPHOMA [None]
